FAERS Safety Report 17781084 (Version 1)
Quarter: 2020Q2

REPORT INFORMATION
  Report Type: Spontaneous
  Country: TW (occurrence: TW)
  Receive Date: 20200513
  Receipt Date: 20200513
  Transmission Date: 20200714
  Serious: Yes (Life-Threatening, Hospitalization)
  Sender: FDA-Public Use
  Company Number: TW-ASTRAZENECA-2020SE61129

PATIENT
  Age: 27 Year
  Sex: Female

DRUGS (6)
  1. PROPRANOLOL [Suspect]
     Active Substance: PROPRANOLOL HYDROCHLORIDE
     Route: 065
  2. FLUNITRAZEPAM [Suspect]
     Active Substance: FLUNITRAZEPAM
     Route: 065
  3. QUETIAPINE. [Suspect]
     Active Substance: QUETIAPINE
     Route: 048
  4. FLURAZEPAM [Suspect]
     Active Substance: FLURAZEPAM HYDROCHLORIDE
     Route: 065
  5. CLONAZEPAM. [Suspect]
     Active Substance: CLONAZEPAM
     Route: 065
  6. FLUPENTIXOL [Suspect]
     Active Substance: FLUPENTIXOL
     Route: 065

REACTIONS (4)
  - Suicide attempt [Recovered/Resolved]
  - Cerebral infarction [Unknown]
  - Intentional overdose [Recovered/Resolved]
  - Ischaemic stroke [Unknown]
